FAERS Safety Report 6655246-9 (Version None)
Quarter: 2010Q1

REPORT INFORMATION
  Report Type: 
  Country: None (occurrence: None)
  Receive Date: 20100329
  Receipt Date: 20100316
  Transmission Date: 20100710
  Serious: Yes (Hospitalization)
  Sender: FDA-Public Use
  Company Number: US-ELI_LILLY_AND_COMPANY-US201001004797

PATIENT
  Age: 85 Year
  Sex: Male

DRUGS (2)
  1. FORTEO [Suspect]
     Indication: SPINAL FRACTURE
  2. PLAQUENIL [Concomitant]

REACTIONS (3)
  - DECREASED APPETITE [None]
  - LUMBAR VERTEBRAL FRACTURE [None]
  - NAUSEA [None]
